FAERS Safety Report 26139183 (Version 1)
Quarter: 2025Q4

REPORT INFORMATION
  Report Type: Spontaneous
  Country: CH (occurrence: CH)
  Receive Date: 20251210
  Receipt Date: 20251210
  Transmission Date: 20260117
  Serious: Yes (Hospitalization)
  Sender: AMGEN
  Company Number: CH-AMGEN-CHESP2025239402

PATIENT
  Age: 9 Year
  Sex: Male

DRUGS (4)
  1. XGEVA [Suspect]
     Active Substance: DENOSUMAB
     Indication: Aneurysmal bone cyst
     Dosage: 2 MILLIGRAM/KILOGRAM, QWK (FOR THE FIRST FOUR WEEKS)
     Route: 058
  2. XGEVA [Suspect]
     Active Substance: DENOSUMAB
     Indication: Off label use
     Dosage: 2 MILLIGRAM/KILOGRAM, QMO (SIXTEEN MONTHS)
     Route: 058
  3. CALCIUM [Concomitant]
     Active Substance: CALCIUM
     Indication: Prophylaxis
  4. VITAMIN D [Concomitant]
     Active Substance: VITAMIN D NOS
     Indication: Prophylaxis

REACTIONS (9)
  - Hypercalcaemia [Recovering/Resolving]
  - Rebound effect [Unknown]
  - Acute kidney injury [Recovering/Resolving]
  - Atrial flutter [Recovered/Resolved]
  - Blood parathyroid hormone decreased [Unknown]
  - Blood phosphorus decreased [Unknown]
  - Myalgia [Unknown]
  - Drug effective for unapproved indication [Unknown]
  - Off label use [Unknown]
